FAERS Safety Report 11905530 (Version 1)
Quarter: 2016Q1

REPORT INFORMATION
  Report Type: Report from Study
  Country: FR (occurrence: FR)
  Receive Date: 20160109
  Receipt Date: 20160109
  Transmission Date: 20160526
  Serious: Yes (Hospitalization, Other)
  Sender: FDA-Public Use
  Company Number: FR-BRISTOL-MYERS SQUIBB COMPANY-11651726

PATIENT
  Age: 8 Day

DRUGS (6)
  1. BACTRIM [Concomitant]
     Active Substance: SULFAMETHOXAZOLE\TRIMETHOPRIM
     Indication: PRODUCT USED FOR UNKNOWN INDICATION
     Dosage: EXPOSURE BEGAN DURING GESTATION.
     Route: 064
  2. RETROVIR [Concomitant]
     Active Substance: ZIDOVUDINE
     Indication: PRODUCT USED FOR UNKNOWN INDICATION
     Dosage: UNK
     Route: 064
  3. I RON [Concomitant]
     Active Substance: FERROUS FUMARATE
     Indication: PRODUCT USED FOR UNKNOWN INDICATION
     Dosage: EXPOSURE BEGAN DURING GESTATION.
     Route: 064
  4. DIDANOSINE. [Suspect]
     Active Substance: DIDANOSINE
     Indication: PRODUCT USED FOR UNKNOWN INDICATION
     Dosage: 400 MG, UNK
     Route: 064
     Dates: start: 200011, end: 20010423
  5. VIRACEPT [Suspect]
     Active Substance: NELFINAVIR MESYLATE
     Indication: PRODUCT USED FOR UNKNOWN INDICATION
     Dosage: EXPOSURE BEGAN DURING GESTATION.
     Route: 064
     Dates: start: 200011
  6. COMBIVIR [Suspect]
     Active Substance: LAMIVUDINE\ZIDOVUDINE
     Indication: PRODUCT USED FOR UNKNOWN INDICATION
     Dosage: 1 DF, QD
     Route: 064
     Dates: start: 200011

REACTIONS (7)
  - Glaucoma [Not Recovered/Not Resolved]
  - Blood lactic acid increased [Unknown]
  - Foetal exposure during pregnancy [Unknown]
  - Blood pyruvic acid decreased [Unknown]
  - Hypokinesia [Unknown]
  - Amylase increased [Unknown]
  - Late developer [Unknown]

NARRATIVE: CASE EVENT DATE: 200105
